FAERS Safety Report 23506990 (Version 2)
Quarter: 2024Q1

REPORT INFORMATION
  Report Type: Spontaneous
  Country: NL (occurrence: NL)
  Receive Date: 20240209
  Receipt Date: 20240222
  Transmission Date: 20240409
  Serious: Yes (Life-Threatening, Disabling, Other)
  Sender: FDA-Public Use
  Company Number: None

PATIENT

DRUGS (11)
  1. ABILIFY MAINTENA [Suspect]
     Active Substance: ARIPIPRAZOLE
     Indication: Product used for unknown indication
     Dosage: 1 INJECTION ONCE EVERY 25 DAYS
     Route: 065
     Dates: start: 20230202
  2. GLICLAZIDE [Suspect]
     Active Substance: GLICLAZIDE
     Indication: Diabetes mellitus
     Dosage: UNK
     Route: 065
     Dates: start: 20200101
  3. HYDROCHLOROTHIAZIDE [Suspect]
     Active Substance: HYDROCHLOROTHIAZIDE
     Indication: Cardiac disorder
     Dosage: 50 MG, QD (1 UNIT 1 TIMES PER DAY, DURING THE DAY)
     Route: 065
     Dates: start: 20200101
  4. METOPROLOL TARTRATE [Suspect]
     Active Substance: METOPROLOL TARTRATE
     Indication: Cardiac disorder
     Dosage: 400 MG
     Route: 065
     Dates: start: 20200101
  5. METFORMIN HYDROCHLORIDE [Suspect]
     Active Substance: METFORMIN HYDROCHLORIDE
     Indication: Diabetes mellitus
     Dosage: 1000 MG, EVERY 8 HOURS (THREE TIMES PER DAY)
     Route: 065
     Dates: start: 20200101
  6. CARBASPIRIN CALCIUM [Suspect]
     Active Substance: CARBASPIRIN CALCIUM
     Indication: Cardiac disorder
     Dosage: 100 MG, QD
     Route: 065
     Dates: start: 20201007
  7. LEVOTHYROXINE [Suspect]
     Active Substance: LEVOTHYROXINE\LEVOTHYROXINE SODIUM
     Indication: Graves^ disease
     Dosage: 100 ?G, QD
     Route: 065
     Dates: start: 20200101
  8. LORAZEPAM [Concomitant]
     Active Substance: LORAZEPAM
     Indication: Product used for unknown indication
     Dosage: 2.5 MG
     Route: 065
  9. LORAZEPAM [Concomitant]
     Active Substance: LORAZEPAM
     Dosage: 5 MG
     Route: 065
  10. OXAZEPAM [Concomitant]
     Active Substance: OXAZEPAM
     Indication: Product used for unknown indication
     Dosage: 50 MG
     Route: 065
  11. BIPERIDEN [Concomitant]
     Active Substance: BIPERIDEN
     Indication: Product used for unknown indication
     Dosage: 2 MG
     Route: 065

REACTIONS (8)
  - Cardiac disorder [Unknown]
  - Swelling [Unknown]
  - Dyspnoea [Unknown]
  - Chest pain [Unknown]
  - Dysphagia [Unknown]
  - Weight abnormal [Unknown]
  - Blood pressure abnormal [Unknown]
  - Inappropriate schedule of product administration [Unknown]
